FAERS Safety Report 14347085 (Version 1)
Quarter: 2018Q1

REPORT INFORMATION
  Report Type: Spontaneous
  Country: US (occurrence: US)
  Receive Date: 20180101
  Receipt Date: 20180101
  Transmission Date: 20180509
  Serious: Yes (Other)
  Sender: FDA-Public Use
  Company Number: None

PATIENT
  Age: 74 Year
  Sex: Male
  Weight: 76.95 kg

DRUGS (2)
  1. LORAZAPEM [Suspect]
     Active Substance: LORAZEPAM
     Indication: ANXIETY
     Dates: start: 20100320, end: 20110114
  2. LORAZAPEM [Suspect]
     Active Substance: LORAZEPAM
     Indication: HYPERSENSITIVITY
     Dates: start: 20100320, end: 20110114

REACTIONS (2)
  - Drug withdrawal syndrome [None]
  - Panic attack [None]

NARRATIVE: CASE EVENT DATE: 20100320
